FAERS Safety Report 9525729 (Version 1)
Quarter: 2013Q3

REPORT INFORMATION
  Report Type: Spontaneous
  Country: BR (occurrence: BR)
  Receive Date: 20130916
  Receipt Date: 20130916
  Transmission Date: 20140515
  Serious: Yes (Hospitalization)
  Sender: FDA-Public Use
  Company Number: BR-SANOFI-AVENTIS-2013SA090164

PATIENT
  Sex: Female
  Weight: 1.47 kg

DRUGS (1)
  1. CLEXANE [Suspect]
     Indication: MATERNAL EXPOSURE TIMING UNSPECIFIED
     Dosage: DOSE: 1 INJECTION
     Route: 064
     Dates: start: 20121210, end: 2013

REACTIONS (4)
  - Foetal growth restriction [Recovered/Resolved]
  - Foetal exposure during pregnancy [Unknown]
  - Underweight [Recovered/Resolved]
  - Oxygen supplementation [Recovered/Resolved]
